FAERS Safety Report 8841937 (Version 1)
Quarter: 2012Q4

REPORT INFORMATION
  Report Type: Spontaneous
  Country: US (occurrence: None)
  Receive Date: 20121015
  Receipt Date: 20121015
  Transmission Date: 20130627
  Serious: No
  Sender: FDA-Public Use
  Company Number: None

PATIENT
  Age: 43 Year
  Sex: Female
  Weight: 59.6 kg

DRUGS (1)
  1. PLAQUENIL [Suspect]
     Indication: UNSPECIFIED INFLAMMATORY POLYARTHROPATHY
     Route: 048
     Dates: start: 201109

REACTIONS (3)
  - Dyspepsia [None]
  - Gastrooesophageal reflux disease [None]
  - Feeling abnormal [None]
